FAERS Safety Report 13653674 (Version 1)
Quarter: 2017Q2

REPORT INFORMATION
  Report Type: Spontaneous
  Country: FR (occurrence: FR)
  Receive Date: 20170614
  Receipt Date: 20170614
  Transmission Date: 20170830
  Serious: Yes (Other)
  Sender: FDA-Public Use
  Company Number: FR-BAYER-2017-110314

PATIENT
  Age: 45 Year
  Sex: Female

DRUGS (1)
  1. MIRENA [Suspect]
     Active Substance: LEVONORGESTREL
     Indication: CHEMICAL CONTRACEPTION
     Dosage: DAILY DOSE 20 ?G
     Route: 015
     Dates: start: 20140626

REACTIONS (15)
  - Visual acuity reduced [Unknown]
  - Pruritus [Unknown]
  - Asthenia [Unknown]
  - Rash [Unknown]
  - Insomnia [Unknown]
  - Weight increased [Unknown]
  - Anxiety [Unknown]
  - Aggression [Unknown]
  - Vaginal discharge [Unknown]
  - Paraesthesia [Unknown]
  - Abnormal dreams [Unknown]
  - Headache [Unknown]
  - Loss of libido [Unknown]
  - Vertigo [Unknown]
  - Anger [Unknown]

NARRATIVE: CASE EVENT DATE: 201511
